FAERS Safety Report 10444653 (Version 2)
Quarter: 2014Q4

REPORT INFORMATION
  Report Type: Spontaneous
  Country: FR (occurrence: FR)
  Receive Date: 20140910
  Receipt Date: 20141020
  Transmission Date: 20150528
  Serious: Yes (Life-Threatening)
  Sender: FDA-Public Use
  Company Number: FR-SA-2014SA121043

PATIENT
  Age: 66 Year
  Sex: Male

DRUGS (8)
  1. INEXIUM [Concomitant]
     Active Substance: ESOMEPRAZOLE
  2. TENORMIN [Concomitant]
     Active Substance: ATENOLOL
  3. LOVENOX [Suspect]
     Active Substance: ENOXAPARIN SODIUM
     Indication: ACUTE CORONARY SYNDROME
     Route: 065
     Dates: start: 20140729
  4. IOMERON [Suspect]
     Active Substance: IOMEPROL
     Indication: CORONARY ARTERY DISEASE
     Route: 065
     Dates: start: 20140729, end: 20140729
  5. KARDEGIC [Concomitant]
     Active Substance: ASPIRIN LYSINE
     Dosage: IN MORNING
  6. PLAVIX [Concomitant]
     Active Substance: CLOPIDOGREL BISULFATE
  7. TAHOR [Concomitant]
     Active Substance: ATORVASTATIN CALCIUM
  8. TRIATEC [Concomitant]
     Active Substance: RAMIPRIL

REACTIONS (1)
  - Coronary artery thrombosis [Recovering/Resolving]

NARRATIVE: CASE EVENT DATE: 20140729
